FAERS Safety Report 9012069 (Version 2)
Quarter: 2014Q1

REPORT INFORMATION
  Report Type: Spontaneous
  Country: US (occurrence: US)
  Receive Date: 20130114
  Receipt Date: 20140110
  Transmission Date: 20141002
  Serious: Yes (Hospitalization, Other)
  Sender: FDA-Public Use
  Company Number: US-BAYER-2013-003313

PATIENT
  Age: 21 Year
  Sex: Female

DRUGS (19)
  1. YAZ [Suspect]
     Indication: ACNE
  2. YASMIN [Suspect]
     Indication: ACNE
  3. MEDROL [METHYLPREDNISOLONE ACETATE] [Concomitant]
     Indication: HYPERSENSITIVITY
     Dosage: UNK
     Route: 048
     Dates: start: 20071210
  4. PERIACTIN [Concomitant]
     Indication: HYPERSENSITIVITY
     Dosage: UNK
     Route: 048
     Dates: start: 20071210
  5. CYMBALTA [Concomitant]
     Dosage: 60 MG, UNK
     Route: 048
     Dates: start: 20071211
  6. TEMAZEPAM [Concomitant]
     Dosage: 30 MG, UNK
     Route: 048
     Dates: start: 20071211
  7. PHENERGAN [Concomitant]
     Indication: UPPER RESPIRATORY TRACT INFECTION
     Dosage: 6.25 MG/ 5 ML
     Route: 048
     Dates: start: 20080112
  8. PHENERGAN [Concomitant]
     Indication: DIARRHOEA
  9. DICYCLOMINE [Concomitant]
     Dosage: 10 MG, UNK
     Route: 048
     Dates: start: 20080112
  10. Z-PAK [Concomitant]
     Indication: UNEVALUABLE EVENT
     Dosage: UNK
     Dates: start: 20080219
  11. FLUTICASONE [Concomitant]
     Dosage: 50 ?G, UNK
     Dates: start: 20080219
  12. ALPRAZOLAM [Concomitant]
     Dosage: 0.5 MG, UNK
     Route: 048
     Dates: start: 20080220
  13. ZOLPIDEM TARTRATE [Concomitant]
     Dosage: 10 MG, UNK
     Route: 048
     Dates: start: 20080220
  14. PSEUDOVENT [Concomitant]
     Dosage: UNK UNK, BID
     Route: 048
     Dates: start: 20080315
  15. TESSALON PERLES [Concomitant]
     Indication: UPPER RESPIRATORY TRACT INFECTION
     Dosage: UNK UNK, TID
     Route: 048
     Dates: start: 20080315
  16. ZANTAC [Concomitant]
     Indication: REFLUX GASTRITIS
     Route: 048
  17. IBUPROFEN [Concomitant]
     Indication: URINARY TRACT INFECTION
  18. PERCOCET [Concomitant]
     Indication: URINARY TRACT INFECTION
  19. BACTRIM [Concomitant]

REACTIONS (9)
  - Deep vein thrombosis [None]
  - Cholecystitis chronic [None]
  - Biliary dyskinesia [None]
  - Pulmonary embolism [None]
  - Cholecystectomy [None]
  - Injury [None]
  - Pain [None]
  - Anxiety [None]
  - Pain [None]
